FAERS Safety Report 21575894 (Version 1)
Quarter: 2022Q4

REPORT INFORMATION
  Report Type: Spontaneous
  Country: US (occurrence: None)
  Receive Date: 20221110
  Receipt Date: 20221110
  Transmission Date: 20230112
  Serious: No
  Sender: FDA-Public Use
  Company Number: US-ROCHE-3215447

PATIENT

DRUGS (2)
  1. OCREVUS [Suspect]
     Active Substance: OCRELIZUMAB
     Indication: Product used for unknown indication
     Route: 065
  2. COVID-19 VACCINE NOS [Suspect]
     Active Substance: COVID-19 VACCINE NOS
     Indication: Product used for unknown indication
     Route: 065

REACTIONS (9)
  - COVID-19 [Unknown]
  - Pyrexia [Unknown]
  - Insomnia [Unknown]
  - Vomiting [Unknown]
  - Myalgia [Unknown]
  - Headache [Unknown]
  - Feeling of body temperature change [Unknown]
  - Pain [Unknown]
  - Immunosuppression [Unknown]
